FAERS Safety Report 8554360-0 (Version None)
Quarter: 2012Q3

REPORT INFORMATION
  Report Type: 
  Country: None (occurrence: None)
  Receive Date: 20120731
  Receipt Date: 20120716
  Transmission Date: 20120928
  Serious: No
  Sender: FDA-Public Use
  Company Number: US-009507513-1207USA005273

PATIENT

DRUGS (3)
  1. METFORMIN HYDROCHLORIDE [Concomitant]
  2. ATORVASTATIN [Concomitant]
  3. JANUVIA [Suspect]
     Indication: DIABETES MELLITUS
     Dosage: UNK
     Route: 048

REACTIONS (1)
  - PRURITUS [None]
